FAERS Safety Report 24009937 (Version 6)
Quarter: 2024Q4

REPORT INFORMATION
  Report Type: Report from Study
  Country: US (occurrence: US)
  Receive Date: 20240625
  Receipt Date: 20241009
  Transmission Date: 20250115
  Serious: Yes (Death, Hospitalization)
  Sender: EISAI
  Company Number: US-Eisai-EC-2024-168563

PATIENT
  Age: 50 Year
  Sex: Female
  Weight: 49.9 kg

DRUGS (4)
  1. LENVATINIB [Suspect]
     Active Substance: LENVATINIB
     Indication: Cervix carcinoma
     Dosage: FREQUENCY: UNKNOWN
     Route: 048
     Dates: end: 20240806
  2. PEMBROLIZUMAB [Suspect]
     Active Substance: PEMBROLIZUMAB
     Indication: Cervix carcinoma
     Dosage: FREQUENCY: UNKNOWN
     Route: 041
     Dates: start: 20230413, end: 20240717
  3. MIRALAX [Concomitant]
     Active Substance: POLYETHYLENE GLYCOL 3350
     Dosage: DOSE AND FREQUENCY UNKNOWN
  4. IBUPROFEN [Concomitant]
     Active Substance: IBUPROFEN
     Dosage: DOSE AND FREQUENCY UNKNOWN

REACTIONS (7)
  - Death [Fatal]
  - Platelet count decreased [Recovering/Resolving]
  - Hydronephrosis [Recovering/Resolving]
  - Pneumonia [Recovering/Resolving]
  - Ureteric obstruction [Recovering/Resolving]
  - Bacteraemia [Not Recovered/Not Resolved]
  - Lung disorder [Not Recovered/Not Resolved]

NARRATIVE: CASE EVENT DATE: 20240616
